FAERS Safety Report 6522603-0 (Version None)
Quarter: 2009Q4

REPORT INFORMATION
  Report Type: 
  Country: None (occurrence: None)
  Receive Date: 20091224
  Receipt Date: 20091210
  Transmission Date: 20100525
  Serious: Yes (Hospitalization)
  Sender: FDA-Public Use
  Company Number: 452404

PATIENT
  Age: 49 Year
  Sex: Male

DRUGS (2)
  1. PROPOFOL [Suspect]
     Indication: DRUG USE FOR UNKNOWN INDICATION
     Dates: start: 20080522
  2. (FLEET /00285401/) [Concomitant]

REACTIONS (3)
  - ATRIAL FIBRILLATION [None]
  - POLYCYTHAEMIA VERA [None]
  - SLEEP APNOEA SYNDROME [None]
